FAERS Safety Report 9685902 (Version 2)
Quarter: 2013Q4

REPORT INFORMATION
  Report Type: Spontaneous
  Country: US (occurrence: US)
  Receive Date: 20131113
  Receipt Date: 20131216
  Transmission Date: 20140711
  Serious: No
  Sender: FDA-Public Use
  Company Number: US-009507513-1311USA001496

PATIENT
  Sex: Female
  Weight: 76.64 kg

DRUGS (1)
  1. NEXPLANON [Suspect]
     Indication: CONTRACEPTION
     Dosage: UNK
     Route: 059
     Dates: start: 20131028

REACTIONS (12)
  - Muscle spasms [Recovering/Resolving]
  - Ovarian cyst [Not Recovered/Not Resolved]
  - Abdominal pain [Not Recovered/Not Resolved]
  - Implant site pain [Recovering/Resolving]
  - Myalgia [Recovering/Resolving]
  - Dysuria [Unknown]
  - Sensory loss [Unknown]
  - Hypoaesthesia [Unknown]
  - Implant site coldness [Unknown]
  - Pyrexia [Recovered/Resolved]
  - Device dislocation [Unknown]
  - Lymphocyte count increased [Unknown]
